FAERS Safety Report 7380517-0 (Version None)
Quarter: 2011Q1

REPORT INFORMATION
  Report Type: 
  Country: None (occurrence: None)
  Receive Date: 20110321
  Receipt Date: 20110309
  Transmission Date: 20110831
  Serious: Yes (Other)
  Sender: FDA-Public Use
  Company Number: 029075

PATIENT
  Sex: Female

DRUGS (1)
  1. CIMZIA [Suspect]
     Indication: CROHN'S DISEASE
     Dosage: LAST INJECTION ON 28/FEB/2011, SUBCUTANEOUS
     Route: 058
     Dates: start: 20090501

REACTIONS (1)
  - SMALL INTESTINAL OBSTRUCTION [None]
